FAERS Safety Report 6119579-7 (Version None)
Quarter: 2009Q1

REPORT INFORMATION
  Report Type: 
  Country: None (occurrence: None)
  Receive Date: 20090316
  Receipt Date: 20090313
  Transmission Date: 20090719
  Serious: Yes (Life-Threatening)
  Sender: FDA-Public Use
  Company Number: B0565145A

PATIENT
  Age: 44 Year
  Sex: Female

DRUGS (1)
  1. AMOXIL [Suspect]
     Indication: PROPHYLAXIS
     Dosage: 500MG PER DAY
     Route: 048
     Dates: start: 20090305, end: 20090305

REACTIONS (4)
  - GENERALISED OEDEMA [None]
  - HYPERSENSITIVITY [None]
  - OBSTRUCTIVE AIRWAYS DISORDER [None]
  - PRURITUS GENITAL [None]
